FAERS Safety Report 6125264-8 (Version None)
Quarter: 2009Q1

REPORT INFORMATION
  Report Type: 
  Country: None (occurrence: None)
  Receive Date: 20090320
  Receipt Date: 20090311
  Transmission Date: 20090719
  Serious: Yes (Hospitalization)
  Sender: FDA-Public Use
  Company Number: PHHY2009GB09030

PATIENT
  Age: 8 Year

DRUGS (2)
  1. METHYLPHENIDATE HCL [Suspect]
     Dosage: 30 MG
     Dates: start: 20081101, end: 20081201
  2. EQUASYM [Suspect]

REACTIONS (2)
  - OEDEMA PERIPHERAL [None]
  - RASH [None]
